FAERS Safety Report 4707451-6 (Version None)
Quarter: 2005Q3

REPORT INFORMATION
  Report Type: 
  Country: None (occurrence: None)
  Receive Date: 20050706
  Receipt Date: 20050622
  Transmission Date: 20060218
  Serious: Yes (Death)
  Sender: FDA-Public Use
  Company Number: US-NOVOPROD-244994

PATIENT
  Age: 36 Year
  Sex: Female

DRUGS (3)
  1. NOVOSEVEN [Suspect]
     Indication: TRAUMATIC HAEMORRHAGE
     Dosage: 90 UG/KG, SINGLE
     Route: 042
     Dates: start: 20050618, end: 20050618
  2. FRESH FROZEN PLASMA [Concomitant]
     Indication: TRAUMATIC HAEMORRHAGE
     Dosage: UNKNOWN
     Route: 042
     Dates: start: 20050618, end: 20050618
  3. PLATELETS [Concomitant]
     Indication: TRAUMATIC HAEMORRHAGE
     Dosage: UNKNOWN
     Route: 042
     Dates: start: 20050618, end: 20050618

REACTIONS (3)
  - BRAIN DEATH [None]
  - BRAIN HERNIATION [None]
  - CONCOMITANT DISEASE PROGRESSION [None]
